FAERS Safety Report 16036135 (Version 4)
Quarter: 2019Q2

REPORT INFORMATION
  Report Type: Spontaneous
  Country: HU (occurrence: HU)
  Receive Date: 20190305
  Receipt Date: 20190612
  Transmission Date: 20190711
  Serious: Yes (Hospitalization, Other)
  Sender: FDA-Public Use
  Company Number: HU-MYLANLABS-2019M1018566

PATIENT
  Age: 42 Month
  Sex: Male

DRUGS (6)
  1. CLARITHROMYCIN. [Suspect]
     Active Substance: CLARITHROMYCIN
     Indication: EMPYEMA
     Dosage: UNK
     Route: 065
  2. CLARITHROMYCIN. [Suspect]
     Active Substance: CLARITHROMYCIN
     Indication: PNEUMONIA
  3. MEROPENEM. [Suspect]
     Active Substance: MEROPENEM
     Indication: PNEUMONIA
     Dosage: UNK
     Route: 065
  4. MEROPENEM. [Suspect]
     Active Substance: MEROPENEM
     Indication: EMPYEMA
  5. CEFOTAXIME [Concomitant]
     Active Substance: CEFOTAXIME SODIUM
     Indication: PNEUMONIA
     Dosage: UNK
     Route: 065
  6. CEFOTAXIME [Concomitant]
     Active Substance: CEFOTAXIME SODIUM
     Indication: EMPYEMA

REACTIONS (29)
  - Pulmonary physical examination abnormal [Recovered/Resolved]
  - Respiratory gas exchange disorder [Recovered/Resolved]
  - Generalised oedema [Unknown]
  - Tachypnoea [Unknown]
  - Tachycardia [Unknown]
  - Dyspnoea [Unknown]
  - Respiratory failure [Recovered/Resolved]
  - Pneumothorax [Recovered/Resolved]
  - Pulmonary oedema [Unknown]
  - Hepatomegaly [Unknown]
  - Malaise [Unknown]
  - Fluid retention [Recovered/Resolved]
  - Condition aggravated [Recovered/Resolved]
  - Oedema [Unknown]
  - Splenomegaly [Unknown]
  - Gastric dilatation [Unknown]
  - Sepsis [Recovered/Resolved]
  - Anaemia [Unknown]
  - Oxygen consumption increased [Unknown]
  - Thrombocytopenia [Recovered/Resolved]
  - Pulmonary pneumatocele [Recovered/Resolved]
  - Coagulation factor increased [Unknown]
  - Pallor [Unknown]
  - Fatigue [Unknown]
  - Asthenia [Recovered/Resolved]
  - Pleural effusion [Recovered/Resolved]
  - Respiration abnormal [Unknown]
  - Oxygen saturation abnormal [Unknown]
  - Pneumonia [Unknown]
